FAERS Safety Report 19011107 (Version 2)
Quarter: 2021Q1

REPORT INFORMATION
  Report Type: Spontaneous
  Country: US (occurrence: US)
  Receive Date: 20210316
  Receipt Date: 20210319
  Transmission Date: 20210420
  Serious: No
  Sender: FDA-Public Use
  Company Number: US-ELI_LILLY_AND_COMPANY-US202103007489

PATIENT
  Age: 70 Year
  Sex: Male

DRUGS (2)
  1. FORTEO [Suspect]
     Active Substance: TERIPARATIDE
     Indication: SPINAL OPERATION
     Dosage: 20 UG, UNKNOWN
     Route: 058
     Dates: start: 20210213
  2. FORTEO [Suspect]
     Active Substance: TERIPARATIDE
     Indication: SPINAL OPERATION
     Dosage: 20 UG, UNKNOWN
     Route: 058
     Dates: start: 20210213

REACTIONS (2)
  - Off label use [Unknown]
  - Incorrect dose administered [Unknown]

NARRATIVE: CASE EVENT DATE: 20210311
